FAERS Safety Report 7500875-3 (Version None)
Quarter: 2011Q2

REPORT INFORMATION
  Report Type: 
  Country: None (occurrence: None)
  Receive Date: 20110524
  Receipt Date: 20110516
  Transmission Date: 20111010
  Serious: Yes (Other)
  Sender: FDA-Public Use
  Company Number: A0928597A

PATIENT
  Sex: Male

DRUGS (3)
  1. LAMICTAL [Suspect]
     Dosage: 200MG UNKNOWN
     Route: 065
     Dates: start: 20080101
  2. ADVAIR DISKUS 100/50 [Suspect]
     Route: 065
     Dates: start: 20080101
  3. VENTOLIN [Suspect]
     Dosage: 90MCG UNKNOWN
     Route: 065
     Dates: start: 20080101

REACTIONS (1)
  - BRAIN NEOPLASM MALIGNANT [None]
